FAERS Safety Report 9629546 (Version 3)
Quarter: 2013Q4

REPORT INFORMATION
  Report Type: Spontaneous
  Country: DE (occurrence: DE)
  Receive Date: 20131017
  Receipt Date: 20131031
  Transmission Date: 20140711
  Serious: Yes (Other)
  Sender: FDA-Public Use
  Company Number: DE-ROCHE-1280979

PATIENT
  Age: 40 Year
  Sex: Female
  Weight: 80 kg

DRUGS (2)
  1. ROFERON-A [Suspect]
     Indication: MALIGNANT MELANOMA
     Dosage: 3 MIO I.U
     Route: 058
     Dates: start: 201209
  2. ROFERON-A [Suspect]
     Dosage: 1.5 MIO. I.U
     Route: 058
     Dates: start: 201303

REACTIONS (8)
  - Depression [Unknown]
  - Alopecia [Recovering/Resolving]
  - Hidradenitis [Unknown]
  - Furuncle [Unknown]
  - Carbuncle [Unknown]
  - Rash [Unknown]
  - Tachycardia [Recovered/Resolved]
  - Dyspnoea [Recovered/Resolved]
